FAERS Safety Report 16934810 (Version 1)
Quarter: 2019Q4

REPORT INFORMATION
  Report Type: Spontaneous
  Country: US (occurrence: US)
  Receive Date: 20191018
  Receipt Date: 20191018
  Transmission Date: 20200122
  Serious: Yes (Hospitalization)
  Sender: FDA-Public Use
  Company Number: US-BRISTOL-MYERS SQUIBB COMPANY-BMS-2019-099251

PATIENT
  Age: 90 Year
  Sex: Male

DRUGS (5)
  1. CRIZOTINIB [Concomitant]
     Active Substance: CRIZOTINIB
     Indication: METASTASES TO LIVER
     Route: 065
  2. WARFARIN SODIUM. [Suspect]
     Active Substance: WARFARIN SODIUM
     Indication: ATRIAL FIBRILLATION
     Dosage: 5 MILLIGRAM DAILY
     Route: 065
  3. CRIZOTINIB [Concomitant]
     Active Substance: CRIZOTINIB
     Indication: METASTASES TO ADRENALS
     Route: 065
  4. WARFARIN SODIUM. [Suspect]
     Active Substance: WARFARIN SODIUM
     Indication: AORTIC VALVE REPLACEMENT
     Route: 065
  5. CRIZOTINIB [Concomitant]
     Active Substance: CRIZOTINIB
     Indication: LUNG ADENOCARCINOMA STAGE IV
     Dosage: UNK
     Route: 065

REACTIONS (3)
  - Anticoagulation drug level above therapeutic [Unknown]
  - Prothrombin time prolonged [Unknown]
  - Haematoma muscle [Unknown]
